FAERS Safety Report 4649775-7 (Version None)
Quarter: 2005Q2

REPORT INFORMATION
  Report Type: 
  Country: None (occurrence: None)
  Receive Date: 20050428
  Receipt Date: 20050419
  Transmission Date: 20051028
  Serious: Yes (Death, Hospitalization)
  Sender: FDA-Public Use
  Company Number: 200510142BNE

PATIENT
  Age: 61 Year
  Sex: Male

DRUGS (1)
  1. CIPROFLOXACIN [Suspect]
     Indication: PSEUDOMONAL SEPSIS
     Dosage: SEE IMAGE

REACTIONS (3)
  - GASTROINTESTINAL HAEMORRHAGE [None]
  - VASCULITIC RASH [None]
  - VASCULITIS [None]
